FAERS Safety Report 9782418 (Version 2)
Quarter: 2014Q2

REPORT INFORMATION
  Report Type: Spontaneous
  Country: GB (occurrence: GB)
  Receive Date: 20131226
  Receipt Date: 20140611
  Transmission Date: 20141212
  Serious: Yes (Other)
  Sender: FDA-Public Use
  Company Number: PHFR2013GB007281

PATIENT
  Age: 27 Year
  Sex: Male

DRUGS (1)
  1. CLOZARIL [Suspect]
     Dosage: 550 MG, QD
     Route: 048
     Dates: start: 20061124

REACTIONS (4)
  - Coeliac disease [Unknown]
  - Epilepsy [Unknown]
  - Antipsychotic drug level increased [Unknown]
  - Platelet count decreased [Not Recovered/Not Resolved]
